FAERS Safety Report 17130759 (Version 2)
Quarter: 2019Q4

REPORT INFORMATION
  Report Type: Spontaneous
  Country: US (occurrence: US)
  Receive Date: 20191209
  Receipt Date: 20191227
  Transmission Date: 20200122
  Serious: No
  Sender: FDA-Public Use
  Company Number: US-ARRAY-2019-06862

PATIENT

DRUGS (2)
  1. BRAFTOVI [Suspect]
     Active Substance: ENCORAFENIB
     Indication: RECTOSIGMOID CANCER
     Dosage: 300 MG, QD
     Route: 048
     Dates: start: 20191030
  2. MEKTOVI [Suspect]
     Active Substance: BINIMETINIB
     Indication: RECTOSIGMOID CANCER
     Dosage: 45 MG, BID
     Route: 048
     Dates: start: 20191030

REACTIONS (5)
  - Product use in unapproved indication [Unknown]
  - Asthenia [Unknown]
  - Fatigue [Unknown]
  - Diarrhoea [Unknown]
  - Dry skin [Unknown]

NARRATIVE: CASE EVENT DATE: 20191030
